FAERS Safety Report 8847208 (Version 1)
Quarter: 2012Q4

REPORT INFORMATION
  Report Type: Spontaneous
  Country: US (occurrence: None)
  Receive Date: 20121017
  Receipt Date: 20121017
  Transmission Date: 20130627
  Serious: No
  Sender: FDA-Public Use
  Company Number: None

PATIENT
  Sex: Female
  Weight: 48.99 kg

DRUGS (1)
  1. ADDERALL XR [Suspect]
     Indication: ADHD
     Dosage: QAM
     Route: 048
     Dates: start: 20090201, end: 20090501

REACTIONS (2)
  - Product substitution issue [None]
  - Drug ineffective [None]
